FAERS Safety Report 8461218-4 (Version None)
Quarter: 2012Q2

REPORT INFORMATION
  Report Type: 
  Country: None (occurrence: None)
  Receive Date: 20120323
  Receipt Date: 20111130
  Transmission Date: 20120825
  Serious: Yes (Hospitalization, Other)
  Sender: FDA-Public Use
  Company Number: 163-21880-11102490

PATIENT
  Age: 79 Year
  Sex: Male

DRUGS (2)
  1. REVLIMID [Suspect]
     Indication: MULTIPLE MYELOMA
     Dosage: 25 MG, DAILY X 21 DAYS, REST FOR 7 DAYS, PO, 25 MG, DAILY X 21 DAYS, REST FOR 7 DAYS, PO
     Route: 048
     Dates: start: 20110812
  2. REVLIMID [Suspect]
     Indication: MULTIPLE MYELOMA
     Dosage: 25 MG, DAILY X 21 DAYS, REST FOR 7 DAYS, PO, 25 MG, DAILY X 21 DAYS, REST FOR 7 DAYS, PO
     Route: 048
     Dates: start: 20100401, end: 20100701

REACTIONS (2)
  - WHITE BLOOD CELL COUNT DECREASED [None]
  - STAPHYLOCOCCAL INFECTION [None]
